FAERS Safety Report 5025165-2 (Version None)
Quarter: 2006Q2

REPORT INFORMATION
  Report Type: 
  Country: None (occurrence: None)
  Receive Date: 20060613
  Receipt Date: 20060515
  Transmission Date: 20061013
  Serious: Yes (Hospitalization, Other)
  Sender: FDA-Public Use
  Company Number: US-GLAXOSMITHKLINE-A0605614A

PATIENT
  Age: 11 Year
  Sex: Male
  Weight: 43 kg

DRUGS (2)
  1. LAMICTAL [Suspect]
     Indication: EPILEPSY
     Route: 048
     Dates: start: 20060414, end: 20060501
  2. AMOXICILLIN [Suspect]
     Indication: SINUSITIS
     Dosage: 250MG THREE TIMES PER DAY
     Route: 048
     Dates: start: 20060429, end: 20060401

REACTIONS (9)
  - DERMATITIS BULLOUS [None]
  - DYSPHAGIA [None]
  - ERYTHEMA INFECTIOSUM [None]
  - ORAL SOFT TISSUE DISORDER [None]
  - RASH [None]
  - RASH PAPULAR [None]
  - SCAB [None]
  - SKIN EXFOLIATION [None]
  - STEVENS-JOHNSON SYNDROME [None]
